FAERS Safety Report 6048009-9 (Version None)
Quarter: 2009Q1

REPORT INFORMATION
  Report Type: 
  Country: None (occurrence: None)
  Receive Date: 20090123
  Receipt Date: 20090121
  Transmission Date: 20090719
  Serious: Yes (Death, Other)
  Sender: FDA-Public Use
  Company Number: PHEH2009US00965

PATIENT
  Sex: Female

DRUGS (1)
  1. AREDIA [Suspect]
     Indication: NEOPLASM MALIGNANT

REACTIONS (6)
  - ANXIETY [None]
  - DEATH [None]
  - DECREASED INTEREST [None]
  - DEFORMITY [None]
  - OSTEONECROSIS [None]
  - PAIN [None]
